FAERS Safety Report 5143001-0 (Version None)
Quarter: 2006Q4

REPORT INFORMATION
  Report Type: 
  Country: None (occurrence: None)
  Receive Date: 20061103
  Receipt Date: 20061024
  Transmission Date: 20070319
  Serious: No
  Sender: FDA-Public Use
  Company Number: AU-ELI_LILLY_AND_COMPANY-AU200610005242

PATIENT
  Age: 45 Year
  Sex: Female

DRUGS (5)
  1. ZYPREXA [Suspect]
     Indication: ANXIETY
     Dosage: 10 MG, UNK
     Dates: start: 20060901
  2. VALIUM                                  /NET/ [Concomitant]
  3. ATENOLOL [Concomitant]
  4. LARGACTIL [Concomitant]
  5. NEXIUM [Concomitant]

REACTIONS (1)
  - HAEMATURIA [None]
